FAERS Safety Report 7544457-6 (Version None)
Quarter: 2011Q2

REPORT INFORMATION
  Report Type: 
  Country: None (occurrence: None)
  Receive Date: 20110613
  Receipt Date: 20080926
  Transmission Date: 20111010
  Serious: Yes (Hospitalization, Other)
  Sender: FDA-Public Use
  Company Number: PHHY2008US20527

PATIENT
  Sex: Male

DRUGS (6)
  1. HEPARIN [Concomitant]
  2. ZOLOFT [Concomitant]
  3. PERCOCET [Concomitant]
  4. DECADRON [Concomitant]
  5. NEXIUM [Concomitant]
  6. CLOZAPINE [Suspect]
     Indication: SCHIZOPHRENIA
     Dosage: 100 MG AM, 400 MG PM
     Route: 048
     Dates: start: 19910101

REACTIONS (5)
  - HYDROCEPHALUS [None]
  - LUNG CANCER METASTATIC [None]
  - BALANCE DISORDER [None]
  - WHITE BLOOD CELL COUNT DECREASED [None]
  - NEUTROPHIL COUNT DECREASED [None]
